FAERS Safety Report 16812810 (Version 1)
Quarter: 2019Q3

REPORT INFORMATION
  Report Type: Spontaneous
  Country: FR (occurrence: FR)
  Receive Date: 20190916
  Receipt Date: 20190916
  Transmission Date: 20191005
  Serious: Yes (Other)
  Sender: FDA-Public Use
  Company Number: FR-JAZZ-2019-FR-003933

PATIENT

DRUGS (7)
  1. DAUNORUBICINE [Concomitant]
     Active Substance: DAUNORUBICIN
     Indication: PRODUCT USED FOR UNKNOWN INDICATION
     Dosage: 30 MG*4 CYCLES
     Route: 042
     Dates: start: 20181120, end: 20181211
  2. ARACYTINE [Concomitant]
     Active Substance: CYTARABINE
     Indication: PRODUCT USED FOR UNKNOWN INDICATION
     Dosage: 4 CYCLES AT 30MG + 1 CYCLE AT 75 + 30MG; CYCLICAL
     Route: 037
     Dates: start: 20181207, end: 20190115
  3. HYDROCORTISONE. [Concomitant]
     Active Substance: HYDROCORTISONE
     Indication: PRODUCT USED FOR UNKNOWN INDICATION
     Dosage: 15 MG, CYCLICAL
     Dates: start: 20181207, end: 20190115
  4. ERWINASE [Suspect]
     Active Substance: ASPARAGINASE ERWINIA CHRYSANTHEMI
     Indication: ACUTE LYMPHOCYTIC LEUKAEMIA
     Dosage: 8*1000UI (INDUCTION) +6000 UI (CONSOLIDATION)
     Route: 042
     Dates: start: 20190118, end: 20190128
  5. METHOTREXATE. [Concomitant]
     Active Substance: METHOTREXATE
     Indication: PRODUCT USED FOR UNKNOWN INDICATION
     Dosage: 12MG*6 INTRATHECALLY + 2800MG IV (CONSOLIDATION); CYCLICAL
     Route: 037
     Dates: start: 20181113
  6. VINCRISTINE SULPHATE [Concomitant]
     Active Substance: VINCRISTINE SULFATE
     Indication: PRODUCT USED FOR UNKNOWN INDICATION
     Dosage: 1.5MG*4 CYCLES (2 INDUCTIONS + 2 CONSOLIDATIONS); CYCLICAL
     Route: 011
     Dates: start: 20181120, end: 20190121
  7. CYCLOPHOSPHAMIDE. [Concomitant]
     Active Substance: CYCLOPHOSPHAMIDE
     Indication: PRODUCT USED FOR UNKNOWN INDICATION
     Dosage: 500MG*2 (INDUCTION) + 500MG*2 (CONSOLIDATION); CYCLICAL
     Route: 042
     Dates: start: 20181120, end: 20181228

REACTIONS (1)
  - Anaphylactoid reaction [Recovered/Resolved]

NARRATIVE: CASE EVENT DATE: 20190128
